FAERS Safety Report 6218909-5 (Version None)
Quarter: 2009Q2

REPORT INFORMATION
  Report Type: 
  Country: None (occurrence: None)
  Receive Date: 20090608
  Receipt Date: 20090526
  Transmission Date: 20091009
  Serious: Yes (Other)
  Sender: FDA-Public Use
  Company Number: US-MYLANLABS-2009S1009241

PATIENT
  Age: 55 Year
  Sex: Male

DRUGS (9)
  1. LEVOTHYROXINE SODIUM [Suspect]
     Indication: HYPOTHYROIDISM
     Dates: start: 20060101
  2. LEVOTHYROXINE SODIUM [Interacting]
     Dates: start: 20060101
  3. LEVOTHYROXINE SODIUM [Interacting]
     Dates: start: 20060101
  4. ZETIA [Interacting]
     Indication: HYPERLIPIDAEMIA
  5. CRESTOR [Interacting]
     Indication: HYPERLIPIDAEMIA
  6. NABUMETONE [Concomitant]
  7. CLOPIDOGREL [Concomitant]
  8. METOPROLOL SUCCINATE [Concomitant]
  9. VALSARTAN [Concomitant]

REACTIONS (3)
  - BLOOD CREATINE PHOSPHOKINASE INCREASED [None]
  - DRUG INTERACTION [None]
  - MYOPATHY [None]
